FAERS Safety Report 9282669 (Version 2)
Quarter: 2013Q3

REPORT INFORMATION
  Report Type: Spontaneous
  Country: BR (occurrence: BR)
  Receive Date: 20130510
  Receipt Date: 20130828
  Transmission Date: 20140515
  Serious: Yes (Other)
  Sender: FDA-Public Use
  Company Number: PHHY2013BR046116

PATIENT
  Sex: Male
  Weight: 88 kg

DRUGS (2)
  1. TEGRETOL [Suspect]
     Indication: EPILEPSY
     Dosage: 0.5 DF, DAILY
     Route: 048
  2. CLONAZEPAM [Concomitant]
     Indication: EPILEPSY
     Dosage: 3 DF, UNK
     Route: 048

REACTIONS (2)
  - Central nervous system lesion [Recovered/Resolved]
  - Partial seizures [Recovered/Resolved]
